FAERS Safety Report 8503217-X (Version None)
Quarter: 2012Q3

REPORT INFORMATION
  Report Type: 
  Country: None (occurrence: None)
  Receive Date: 20120702
  Receipt Date: 20120125
  Transmission Date: 20120928
  Serious: Yes (Hospitalization, Other)
  Sender: FDA-Public Use
  Company Number: GB-023544

PATIENT
  Age: 66 Year
  Sex: Female

DRUGS (2)
  1. RITUXIMAB (RITUXIMAB) [Suspect]
     Indication: CHRONIC LYMPHOCYTIC LEUKAEMIA
     Dosage: 580MG MONTHLY (580 MILLIGRAM)
     Route: 042
     Dates: start: 20101105
  2. CHLORAMBUCIL (CHLORAMBUCIL) [Suspect]
     Indication: CHRONIC LYMPHOCYTIC LEUKAEMIA
     Dosage: 16MG MONTHLY (16 MILLIGRAM)
     Route: 048
     Dates: start: 20101105

REACTIONS (5)
  - DIZZINESS [None]
  - FATIGUE [None]
  - DECREASED APPETITE [None]
  - CHILLS [None]
  - ESCHERICHIA URINARY TRACT INFECTION [None]
